FAERS Safety Report 15282390 (Version 1)
Quarter: 2018Q3

REPORT INFORMATION
  Report Type: Spontaneous
  Country: HR (occurrence: HR)
  Receive Date: 20180816
  Receipt Date: 20180816
  Transmission Date: 20181010
  Serious: Yes (Other)
  Sender: FDA-Public Use
  Company Number: HR-BAXTER-2018BAX021479

PATIENT
  Age: 55 Year
  Sex: Male
  Weight: 85 kg

DRUGS (2)
  1. ETOPOSIDE SANDOZ [Suspect]
     Active Substance: ETOPOSIDE
     Indication: HODGKIN^S DISEASE
     Route: 041
     Dates: start: 20180516, end: 20180516
  2. ENDOXAN PRASAK ZA OTOPINU ZA INJEKCIJU 1 G [Suspect]
     Active Substance: CYCLOPHOSPHAMIDE
     Indication: HODGKIN^S DISEASE
     Route: 050
     Dates: start: 20180516, end: 20180516

REACTIONS (3)
  - Chills [Recovered/Resolved]
  - Urticaria [Recovered/Resolved]
  - Choking sensation [Recovered/Resolved]

NARRATIVE: CASE EVENT DATE: 20180516
